FAERS Safety Report 17339479 (Version 1)
Quarter: 2020Q1

REPORT INFORMATION
  Report Type: Spontaneous
  Country: US (occurrence: US)
  Receive Date: 20200128
  Receipt Date: 20200128
  Transmission Date: 20200409
  Serious: No
  Sender: FDA-Public Use
  Company Number: None

PATIENT
  Age: 42 Year
  Sex: Male
  Weight: 101.25 kg

DRUGS (6)
  1. SEROQUEL [Concomitant]
     Active Substance: QUETIAPINE FUMARATE
  2. ROBITUSSIN 12 HOUR COUGH RELIEF [Suspect]
     Active Substance: DEXTROMETHORPHAN HYDROBROMIDE
     Indication: OROPHARYNGEAL PAIN
     Dates: start: 20200128, end: 20200128
  3. RISPERIDONE. [Concomitant]
     Active Substance: RISPERIDONE
  4. CLONAZEPAM. [Concomitant]
     Active Substance: CLONAZEPAM
  5. FISH OIL [Concomitant]
     Active Substance: FISH OIL
  6. ZOLOFT [Concomitant]
     Active Substance: SERTRALINE HYDROCHLORIDE

REACTIONS (1)
  - Headache [None]

NARRATIVE: CASE EVENT DATE: 20200128
